FAERS Safety Report 10004586 (Version 1)
Quarter: 2014Q1

REPORT INFORMATION
  Report Type: Spontaneous
  Country: US (occurrence: US)
  Receive Date: 20140312
  Receipt Date: 20140312
  Transmission Date: 20141002
  Serious: No
  Sender: FDA-Public Use
  Company Number: US-INCYTE CORPORATION-2013IN003047

PATIENT
  Sex: 0

DRUGS (7)
  1. JAKAFI [Suspect]
     Indication: MYELOFIBROSIS
     Dosage: 5 MG, BID
     Route: 048
     Dates: start: 20131122
  2. JAKAFI [Suspect]
     Indication: MYELODYSPLASTIC SYNDROME
  3. CARVEDILOL [Concomitant]
  4. LISINOPRIL [Concomitant]
  5. LEVOTHYROXINE [Concomitant]
  6. CEPHALEXIN                         /00145501/ [Concomitant]
  7. PRAVACHOL [Concomitant]

REACTIONS (1)
  - Hepatic enzyme increased [Unknown]
